FAERS Safety Report 5367526-8 (Version None)
Quarter: 2007Q2

REPORT INFORMATION
  Report Type: 
  Country: None (occurrence: None)
  Receive Date: 20070622
  Receipt Date: 20070615
  Transmission Date: 20071010
  Serious: Yes (Life-Threatening)
  Sender: FDA-Public Use
  Company Number: KR-ASTRAZENECA-2007AC01107

PATIENT
  Age: 22 Year
  Sex: Female

DRUGS (1)
  1. HEAVY BUPIVACAINE [Suspect]
     Indication: SPINAL ANAESTHESIA
     Route: 037

REACTIONS (4)
  - ARRHYTHMIA [None]
  - CARDIOGENIC SHOCK [None]
  - LEFT VENTRICULAR DYSFUNCTION [None]
  - MYOCARDIAL INFARCTION [None]
